FAERS Safety Report 4299967-4 (Version None)
Quarter: 2004Q1

REPORT INFORMATION
  Report Type: 
  Country: None (occurrence: None)
  Receive Date: 20040218
  Receipt Date: 20040204
  Transmission Date: 20041129
  Serious: Yes (Hospitalization)
  Sender: FDA-Public Use
  Company Number: JP_040202604

PATIENT
  Age: 75 Year
  Sex: Female

DRUGS (7)
  1. PERMAX [Suspect]
     Indication: PARKINSON'S DISEASE
     Dosage: 1500 UG/DAY
     Dates: start: 19991201
  2. CARBIDOPA AND LEVODOPA [Concomitant]
  3. TRIHEXYPHENIDYL HCL [Concomitant]
  4. DROXIDOPA [Concomitant]
  5. SELEGILINE HCL [Concomitant]
  6. CABERGOLINE [Concomitant]
  7. BROMOCRIPTINE MESYLATE [Concomitant]

REACTIONS (10)
  - DECREASED APPETITE [None]
  - DELIRIUM [None]
  - DIZZINESS [None]
  - DRUG EFFECT DECREASED [None]
  - FALL [None]
  - GAIT DISTURBANCE [None]
  - HALLUCINATION [None]
  - MASKED FACIES [None]
  - NOCTURIA [None]
  - TREMOR [None]
